FAERS Safety Report 14394392 (Version 3)
Quarter: 2018Q1

REPORT INFORMATION
  Report Type: Report from Study
  Country: CA (occurrence: CA)
  Receive Date: 20180116
  Receipt Date: 20180316
  Transmission Date: 20180509
  Serious: Yes (Hospitalization, Other)
  Sender: FDA-Public Use
  Company Number: CA-JNJFOC-20180107785

PATIENT
  Age: 54 Year
  Sex: Male
  Weight: 84.3 kg

DRUGS (1)
  1. DARZALEX [Suspect]
     Active Substance: DARATUMUMAB
     Indication: PLASMA CELL MYELOMA
     Dosage: STRENGTH = 400 MG
     Route: 042
     Dates: start: 20161208

REACTIONS (5)
  - Influenza [Recovering/Resolving]
  - Infection [Recovering/Resolving]
  - Pain in extremity [Not Recovered/Not Resolved]
  - Blood immunoglobulin M increased [Unknown]
  - Arthralgia [Not Recovered/Not Resolved]

NARRATIVE: CASE EVENT DATE: 20171226
